FAERS Safety Report 18504511 (Version 2)
Quarter: 2020Q4

REPORT INFORMATION
  Report Type: Spontaneous
  Country: FR (occurrence: FR)
  Receive Date: 20201114
  Receipt Date: 20201207
  Transmission Date: 20210114
  Serious: Yes (Hospitalization)
  Sender: FDA-Public Use
  Company Number: NVSC2020FR299123

PATIENT
  Age: 85 Year
  Sex: Female
  Weight: 73 kg

DRUGS (10)
  1. BISOCE [Concomitant]
     Active Substance: BISOPROLOL
     Indication: CARDIOVASCULAR DISORDER
     Dosage: 1.25 MG, QD(1,25 MG, COMPRIM? PELLICUL?)
     Route: 048
     Dates: start: 20200930, end: 20201014
  2. SERTRALINE HYDROCHLORIDE. [Concomitant]
     Active Substance: SERTRALINE HYDROCHLORIDE
     Indication: PRODUCT USED FOR UNKNOWN INDICATION
     Route: 048
     Dates: start: 20200927
  3. METFORMINE [Suspect]
     Active Substance: METFORMIN HYDROCHLORIDE
     Indication: TYPE 2 DIABETES MELLITUS
     Dosage: 1500 MG, QD
     Route: 048
     Dates: start: 20200927, end: 20201005
  4. ATORVASTATIN [Suspect]
     Active Substance: ATORVASTATIN
     Indication: CARDIOVASCULAR DISORDER
     Dosage: 40 MG, QD
     Route: 048
     Dates: start: 20201006, end: 20201013
  5. AUGMENTIN [Suspect]
     Active Substance: AMOXICILLIN\CLAVULANATE POTASSIUM
     Indication: INFECTION
     Dosage: 3 DF, QD
     Route: 048
     Dates: start: 20200929, end: 20201006
  6. PANTOPRAZOLE [Concomitant]
     Active Substance: PANTOPRAZOLE
     Indication: PROPHYLAXIS AGAINST GASTROINTESTINAL ULCER
     Dosage: 20 MG, QD
     Route: 048
     Dates: start: 20200927
  7. RIVASTIGMINE HYDROGEN TARTRATE [Concomitant]
     Active Substance: RIVASTIGMINE TARTRATE
     Indication: DEMENTIA
     Dosage: 3 MG, QD
     Route: 048
     Dates: start: 20200928, end: 20201012
  8. IOMERON [Suspect]
     Active Substance: IOMEPROL
     Indication: IMAGING PROCEDURE
     Dosage: 1 DF (TOTAL)
     Route: 042
     Dates: start: 20201002
  9. PRADAXA [Concomitant]
     Active Substance: DABIGATRAN ETEXILATE MESYLATE
     Indication: ANTICOAGULANT THERAPY
     Dosage: 220 MG, QD
     Route: 048
     Dates: start: 20200927
  10. KARDEGIC [Suspect]
     Active Substance: ASPIRIN DL-LYSINE
     Indication: CARDIOVASCULAR DISORDER
     Dosage: 75 MG, QD (POUDRE POUR SOLUTION BUVABLE EN SACHET-DOSE)
     Route: 048
     Dates: start: 20201007, end: 20201014

REACTIONS (3)
  - Acute kidney injury [Recovered/Resolved]
  - Toxic skin eruption [Not Recovered/Not Resolved]
  - Diarrhoea [Recovered/Resolved]

NARRATIVE: CASE EVENT DATE: 20201005
